FAERS Safety Report 7213628-0 (Version None)
Quarter: 2010Q4

REPORT INFORMATION
  Report Type: 
  Country: None (occurrence: None)
  Receive Date: 20101126
  Receipt Date: 20091221
  Transmission Date: 20110411
  Serious: Yes (Other)
  Sender: FDA-Public Use
  Company Number: WAES 0912USA02852

PATIENT

DRUGS (2)
  1. FOSAMAX [Suspect]
     Dosage: PO
     Route: 048
     Dates: start: 20040101
  2. RECLAST [Concomitant]

REACTIONS (2)
  - BONE DENSITY DECREASED [None]
  - OSTEONECROSIS [None]
